FAERS Safety Report 17625570 (Version 4)
Quarter: 2020Q4

REPORT INFORMATION
  Report Type: Spontaneous
  Country: US (occurrence: US)
  Receive Date: 20200404
  Receipt Date: 20201217
  Transmission Date: 20210113
  Serious: No
  Sender: FDA-Public Use
  Company Number: US-TEVA-2020-US-1219226

PATIENT
  Sex: Male

DRUGS (1)
  1. QVAR REDIHALER [Suspect]
     Active Substance: BECLOMETHASONE DIPROPIONATE
     Dosage: 80 MCG, 2 PUFFS 2X DAY
     Route: 055

REACTIONS (4)
  - Device malfunction [Unknown]
  - Drug ineffective [Unknown]
  - Product taste abnormal [Unknown]
  - Device defective [Unknown]
